FAERS Safety Report 10715871 (Version 1)
Quarter: 2015Q1

REPORT INFORMATION
  Report Type: Report from Study
  Country: US (occurrence: None)
  Receive Date: 20150109
  Receipt Date: 20150109
  Transmission Date: 20150721
  Serious: Yes (Hospitalization)
  Sender: FDA-Public Use
  Company Number: 2014PROUSA03541

PATIENT
  Age: 73 Year
  Sex: Male

DRUGS (7)
  1. THERAPEUTIC RADIOPHARMACEUTICALS [Suspect]
     Active Substance: RADIATION THERAPY
     Indication: PROSTATE CANCER METASTATIC
     Dosage: 3 GY PER FRACTION, TOTAL DOSE 330 GY
     Dates: start: 20130805, end: 20130816
  2. PROVENGE [Suspect]
     Active Substance: SIPULEUCEL-T
     Indication: PROSTATE CANCER METASTATIC
     Route: 042
     Dates: start: 20130826, end: 20130826
  3. LOSARTAN POTASSIUM AND HYDROCHLOROTHIAZIDE (HYDROCHLOROTHIAZIDE, LOSARTAN POTASSIUM) [Concomitant]
  4. ZOCOR [Concomitant]
     Active Substance: SIMVASTATIN
  5. TOVIAZ [Concomitant]
     Active Substance: FESOTERODINE FUMARATE
  6. LEVOFLOXACIN. [Concomitant]
     Active Substance: LEVOFLOXACIN
  7. ZANTAC (RANITIDINE HYDORCHLORIDE) [Concomitant]

REACTIONS (1)
  - Haematuria [None]

NARRATIVE: CASE EVENT DATE: 20130914
